FAERS Safety Report 12474845 (Version 1)
Quarter: 2016Q2

REPORT INFORMATION
  Report Type: Spontaneous
  Country: DK (occurrence: DK)
  Receive Date: 20160617
  Receipt Date: 20160617
  Transmission Date: 20160815
  Serious: Yes (Other)
  Sender: FDA-Public Use
  Company Number: DK-ROCHE-1583507

PATIENT
  Age: 51 Year
  Sex: Female

DRUGS (3)
  1. ZOLADEX [Concomitant]
     Active Substance: GOSERELIN ACETATE
     Indication: BREAST CANCER
     Route: 065
     Dates: start: 200907
  2. LETROZOLE. [Concomitant]
     Active Substance: LETROZOLE
     Indication: BREAST CANCER
     Route: 065
     Dates: start: 200909
  3. BONDRONAT [Suspect]
     Active Substance: IBANDRONIC ACID
     Indication: BREAST CANCER METASTATIC
     Dosage: STYRKE: 50 MG
     Route: 048
     Dates: start: 20071015, end: 20140820

REACTIONS (3)
  - Ulcer [Unknown]
  - Osteonecrosis of jaw [Recovered/Resolved]
  - Bone operation [Recovered/Resolved]

NARRATIVE: CASE EVENT DATE: 20141215
